FAERS Safety Report 7166569-1 (Version None)
Quarter: 2010Q4

REPORT INFORMATION
  Report Type: 
  Country: None (occurrence: None)
  Receive Date: 20101203
  Receipt Date: 20101118
  Transmission Date: 20110411
  Serious: Yes (Other)
  Sender: FDA-Public Use
  Company Number: DSJ-2010-20814

PATIENT
  Age: 58 Year
  Sex: Female

DRUGS (7)
  1. AMLODIPINE BESYLATE AND OLMESARTAN MEDOXOMIL [Suspect]
     Indication: HYPERTENSION
     Dosage: 40/10 MG (1 IN 1 D), PER ORAL
     Route: 048
     Dates: start: 20090714
  2. AMLODIPINE BESYLATE AND OLMESARTAN MEDOXOMIL [Suspect]
     Indication: HYPERTENSION
     Dosage: 40/10 MG (1 IN 1 D), PER ORAL
     Route: 048
     Dates: start: 20090714
  3. CILOSTAZOL [Concomitant]
  4. GLIBENCLAMIDE [Concomitant]
  5. METFORMIN [Concomitant]
  6. INSULIN [Concomitant]
  7. EZETIMIBE AND SIMVASTATIN [Concomitant]

REACTIONS (3)
  - DIZZINESS [None]
  - HYPERGLYCAEMIA [None]
  - VOMITING [None]
